FAERS Safety Report 23658638 (Version 2)
Quarter: 2024Q2

REPORT INFORMATION
  Report Type: Report from Study
  Country: GB (occurrence: GB)
  Receive Date: 20240321
  Receipt Date: 20240403
  Transmission Date: 20240716
  Serious: Yes (Hospitalization)
  Sender: FDA-Public Use
  Company Number: GB-SANDOZ-SDZ2024GB029578

PATIENT
  Sex: Male

DRUGS (1)
  1. HYRIMOZ [Suspect]
     Active Substance: ADALIMUMAB-ADAZ
     Indication: Rheumatoid arthritis
     Dosage: 40.00 MG, Q2W
     Route: 058

REACTIONS (2)
  - Hospitalisation [Not Recovered/Not Resolved]
  - Malaise [Unknown]
